FAERS Safety Report 8113008-X (Version None)
Quarter: 2012Q1

REPORT INFORMATION
  Report Type: 
  Country: None (occurrence: None)
  Receive Date: 20120203
  Receipt Date: 20120122
  Transmission Date: 20120608
  Serious: Yes (Other)
  Sender: FDA-Public Use
  Company Number: CA-ELI_LILLY_AND_COMPANY-CA201201007039

PATIENT
  Age: 76 Year
  Sex: Male

DRUGS (4)
  1. GLYBURIDE [Concomitant]
     Indication: DIABETES MELLITUS
  2. FORTEO [Suspect]
     Indication: OSTEOPOROSIS
     Dosage: 20 UG, QD
     Route: 058
     Dates: start: 20110328, end: 20110911
  3. LEVOTHYROXINE SODIUM [Concomitant]
     Indication: THYROID DISORDER
  4. MEFORMIN [Concomitant]
     Indication: DIABETES MELLITUS

REACTIONS (4)
  - FALL [None]
  - RASH [None]
  - JOINT INJURY [None]
  - OSTEOPOROSIS [None]
